FAERS Safety Report 11074194 (Version 1)
Quarter: 2015Q2

REPORT INFORMATION
  Report Type: Spontaneous
  Country: ES (occurrence: ES)
  Receive Date: 20150429
  Receipt Date: 20150429
  Transmission Date: 20150821
  Serious: Yes (Hospitalization, Other)
  Sender: FDA-Public Use
  Company Number: ES-ASTRAZENECA-2015SE38862

PATIENT
  Age: 66 Year
  Sex: Female

DRUGS (13)
  1. MEROPENEM. [Suspect]
     Active Substance: MEROPENEM
     Dosage: 500 MG DAILY,  (0-1-0)
     Route: 042
  2. SEGURIL (FUROSEMIDE) [Interacting]
     Active Substance: FUROSEMIDE
     Route: 042
  3. LINEZOLID. [Suspect]
     Active Substance: LINEZOLID
     Dosage: 600 MG, TWO TIMES A DAY (1-0-1)
     Route: 042
  4. CLEXANE (ENOXAPARIN SODIUM) [Suspect]
     Active Substance: ENOXAPARIN SODIUM
     Dosage: 40 MG DAILY, (0-1-0)
     Route: 058
  5. POTASION (POTASSIUM CHLORIDE) [Suspect]
     Active Substance: POTASSIUM CHLORIDE
     Dosage: 600 MG TWO TIMES A DAY, (0-2-0)
     Route: 048
  6. PRIMPERAN [Suspect]
     Active Substance: METOCLOPRAMIDE HYDROCHLORIDE
     Dosage: 10 MG THREE TIMES A DAY, (1-1-1)
     Route: 048
  7. SEGURIL (FUROSEMIDE) [Interacting]
     Active Substance: FUROSEMIDE
     Dosage: 20 MG DAILY, (1-0-0)
     Route: 042
  8. CICLOFALINA (PIRACETAM) [Suspect]
     Active Substance: PIRACETAM
     Dosage: 800 MG DAILY,  (0-0-1)
     Route: 048
  9. OMEPRAZOLE. [Interacting]
     Active Substance: OMEPRAZOLE
     Dosage: 20 MG DAILY,  (1-0-0)
     Route: 048
  10. FLUMIL (ACETYLCYSTEINE) [Suspect]
     Active Substance: ACETYLCYSTEINE
     Dosage: 200 MG THREE TIMES DAY,  (1-1-1)
     Route: 048
  11. QUETIAPINE FUMARATE. [Suspect]
     Active Substance: QUETIAPINE FUMARATE
     Indication: SLEEP DISORDER
     Dosage: 25 MG DAILY, (0-0-1)
     Route: 048
     Dates: start: 20140618
  12. PREDNISONE. [Interacting]
     Active Substance: PREDNISONE
     Dosage: 5 MG DAILY, (1-0-0)
     Route: 048
  13. MIANSERIN HYDROCHLORIDE [Suspect]
     Active Substance: MIANSERIN HYDROCHLORIDE
     Indication: SLEEP DISORDER
     Dosage: 10 MG , (0-0-1/2)
     Route: 048
     Dates: start: 20140618

REACTIONS (11)
  - Sedation [Unknown]
  - Fatigue [Unknown]
  - Respiratory distress [Unknown]
  - Electrolyte imbalance [Recovered/Resolved]
  - Dizziness [Unknown]
  - Confusional state [Unknown]
  - Drug interaction [Unknown]
  - Palpitations [Unknown]
  - Tremor [Unknown]
  - Aspiration [Unknown]
  - Circumstance or information capable of leading to medication error [Unknown]

NARRATIVE: CASE EVENT DATE: 20140625
